FAERS Safety Report 9184019 (Version 1)
Quarter: 2012Q4

REPORT INFORMATION
  Report Type: 
  Country: US (occurrence: US)
  Receive Date: 20121031
  Receipt Date: 20121031
  Transmission Date: 20130627
  Serious: No
  Sender: FDA-Public Use
  Company Number: US-009507513-1210USA011244

PATIENT
  Age: 54 Year
  Sex: Female

DRUGS (1)
  1. NASONEX [Suspect]
     Dosage: UNK
     Route: 045
     Dates: start: 20121023, end: 20121023

REACTIONS (2)
  - Disorientation [Recovered/Resolved]
  - Eye irritation [Recovered/Resolved]
